FAERS Safety Report 12619651 (Version 3)
Quarter: 2016Q4

REPORT INFORMATION
  Report Type: Report from Study
  Country: IL (occurrence: IL)
  Receive Date: 20160803
  Receipt Date: 20161213
  Transmission Date: 20170207
  Serious: No
  Sender: FDA-Public Use
  Company Number: IL-EISAI MEDICAL RESEARCH-EC-2016-015435

PATIENT
  Age: 13 Year
  Sex: Male
  Weight: 18.4 kg

DRUGS (3)
  1. FYCOMPA [Suspect]
     Active Substance: PERAMPANEL
     Indication: COMPLEX PARTIAL SEIZURES
     Route: 048
     Dates: start: 20151022, end: 20160124
  2. KEPPRA [Concomitant]
     Active Substance: LEVETIRACETAM
  3. OSPOLOT [Concomitant]
     Active Substance: SULTHIAME

REACTIONS (1)
  - Oppositional defiant disorder [Recovered/Resolved]

NARRATIVE: CASE EVENT DATE: 20160118
